FAERS Safety Report 20660856 (Version 1)
Quarter: 2022Q1

REPORT INFORMATION
  Report Type: Spontaneous
  Country: US (occurrence: US)
  Receive Date: 20220331
  Receipt Date: 20220331
  Transmission Date: 20220424
  Serious: No
  Sender: FDA-Public Use
  Company Number: US-ELI_LILLY_AND_COMPANY-US202203011888

PATIENT
  Age: 65 Year
  Sex: Male

DRUGS (2)
  1. HUMULIN 70/30 [Suspect]
     Active Substance: INSULIN HUMAN
     Indication: Product used for unknown indication
     Dosage: UNK UNK, UNKNOWN
     Route: 065
     Dates: start: 20220311
  2. VICTOZA [Concomitant]
     Active Substance: LIRAGLUTIDE
     Indication: Product used for unknown indication

REACTIONS (5)
  - Blood glucose increased [Unknown]
  - Hyperglycaemia [Unknown]
  - Feeling abnormal [Unknown]
  - Dysarthria [Unknown]
  - Memory impairment [Unknown]

NARRATIVE: CASE EVENT DATE: 20220325
